FAERS Safety Report 7607083-6 (Version None)
Quarter: 2011Q3

REPORT INFORMATION
  Report Type: 
  Country: None (occurrence: None)
  Receive Date: 20110706
  Receipt Date: 20110621
  Transmission Date: 20111222
  Serious: Yes (Hospitalization)
  Sender: FDA-Public Use
  Company Number: AUR-APL-2011-03664

PATIENT
  Age: 67 Year
  Sex: Female

DRUGS (1)
  1. LISINOPRIL [Suspect]
     Indication: PRODUCT USED FOR UNKNOWN INDICATION

REACTIONS (7)
  - DIARRHOEA [None]
  - VOMITING [None]
  - SCAN ABDOMEN ABNORMAL [None]
  - SMALL BOWEL ANGIOEDEMA [None]
  - ABDOMINAL PAIN [None]
  - ASCITES [None]
  - NAUSEA [None]
